FAERS Safety Report 23910923 (Version 2)
Quarter: 2025Q1

REPORT INFORMATION
  Report Type: Spontaneous
  Country: US (occurrence: US)
  Receive Date: 20240528
  Receipt Date: 20250227
  Transmission Date: 20250409
  Serious: No
  Sender: AVADEL CNS PHARMACEUTICALS, LLC
  Company Number: US-AVADEL CNS PHARMACEUTICALS, LLC-2024AVA00477

PATIENT
  Sex: Female
  Weight: 77.098 kg

DRUGS (27)
  1. LUMRYZ [Suspect]
     Active Substance: SODIUM OXYBATE
     Indication: Narcolepsy
     Dosage: 6 G, ONCE NIGHTLY
     Route: 048
     Dates: start: 20240320, end: 20240321
  2. LUMRYZ [Suspect]
     Active Substance: SODIUM OXYBATE
     Indication: Somnolence
     Dosage: 6 G, ONCE NIGHTLY
     Route: 048
     Dates: start: 20240323, end: 2024
  3. LUMRYZ [Suspect]
     Active Substance: SODIUM OXYBATE
     Indication: Narcolepsy
     Dosage: 7.5 G, ONCE NIGHTLY
     Route: 048
  4. LUMRYZ [Suspect]
     Active Substance: SODIUM OXYBATE
     Indication: Narcolepsy
     Dosage: 9 G, ONCE NIGHTLY AT BEDTIME
     Route: 048
     Dates: start: 2024, end: 2024
  5. LUMRYZ [Suspect]
     Active Substance: SODIUM OXYBATE
     Dosage: 9 G, ONCE NIGHTLY AT BEDTIME
     Route: 048
     Dates: start: 20241123
  6. MODAFINIL [Concomitant]
     Active Substance: MODAFINIL
     Dosage: 200 MG, ONCE DAILY
  7. MODAFINIL [Concomitant]
     Active Substance: MODAFINIL
  8. LISDEXAMFETAMINE [Concomitant]
     Active Substance: LISDEXAMFETAMINE
  9. VYVANSE [Concomitant]
     Active Substance: LISDEXAMFETAMINE DIMESYLATE
  10. ONDANSETRON HYDROCHLORIDE [Concomitant]
     Active Substance: ONDANSETRON HYDROCHLORIDE
  11. ALBUTEROL SULFATE [Concomitant]
     Active Substance: ALBUTEROL SULFATE
  12. AZELASTINE HYDROCHLORIDE\FLUTICASONE PROPIONATE [Concomitant]
     Active Substance: AZELASTINE HYDROCHLORIDE\FLUTICASONE PROPIONATE
  13. RIZATRIPTAN [Concomitant]
     Active Substance: RIZATRIPTAN
  14. MYRBETRIQ [Concomitant]
     Active Substance: MIRABEGRON
     Dosage: 50 MG, 24 HOURS
  15. AMITRIPTYLINE HYDROCHLORIDE [Concomitant]
     Active Substance: AMITRIPTYLINE HYDROCHLORIDE
  16. VITAMIN C [Concomitant]
     Active Substance: ASCORBIC ACID
  17. IRON [Concomitant]
     Active Substance: IRON
  18. BACLOFEN [Concomitant]
     Active Substance: BACLOFEN
  19. GABAPENTIN [Concomitant]
     Active Substance: GABAPENTIN
  20. BUPROPION HYDROCHLORIDE [Concomitant]
     Active Substance: BUPROPION HYDROCHLORIDE
     Dosage: 150 MG, EVERY 12 HOURS
  21. BUPROPION HYDROCHLORIDE [Concomitant]
     Active Substance: BUPROPION HYDROCHLORIDE
  22. CELEXA [Concomitant]
     Active Substance: CITALOPRAM HYDROBROMIDE
  23. TACROLIMUS [Concomitant]
     Active Substance: TACROLIMUS
  24. SPIRONOLACTONE [Concomitant]
     Active Substance: SPIRONOLACTONE
  25. MODAFINIL [Concomitant]
     Active Substance: MODAFINIL
  26. HALOBETASOL [Concomitant]
     Active Substance: HALOBETASOL
  27. FLUOCINOLONE [Concomitant]
     Active Substance: FLUOCINOLONE

REACTIONS (12)
  - Middle insomnia [Recovered/Resolved]
  - Initial insomnia [Not Recovered/Not Resolved]
  - Abdominal discomfort [Unknown]
  - Insomnia [Recovered/Resolved]
  - Nail cuticle fissure [Unknown]
  - Abnormal sleep-related event [Not Recovered/Not Resolved]
  - Contusion [Not Recovered/Not Resolved]
  - Stress [Not Recovered/Not Resolved]
  - Sinusitis [Not Recovered/Not Resolved]
  - Pain [Not Recovered/Not Resolved]
  - Somnambulism [Not Recovered/Not Resolved]
  - Unevaluable event [Unknown]

NARRATIVE: CASE EVENT DATE: 20240101
